FAERS Safety Report 8390792-1 (Version None)
Quarter: 2012Q2

REPORT INFORMATION
  Report Type: 
  Country: None (occurrence: None)
  Receive Date: 20120515
  Receipt Date: 20120504
  Transmission Date: 20120825
  Serious: Yes (Hospitalization, Other)
  Sender: FDA-Public Use
  Company Number: 2012SP024147

PATIENT
  Sex: Female

DRUGS (2)
  1. PEGASYS [Suspect]
     Indication: HEPATITIS C
     Dates: start: 20120316, end: 20120424
  2. RIBAVIRIN [Suspect]
     Indication: HEPATITIS C
     Dates: start: 20120316, end: 20120424

REACTIONS (2)
  - ANAEMIA [None]
  - DEHYDRATION [None]
